FAERS Safety Report 25936475 (Version 1)
Quarter: 2025Q4

REPORT INFORMATION
  Report Type: Spontaneous
  Country: KR (occurrence: KR)
  Receive Date: 20251017
  Receipt Date: 20251017
  Transmission Date: 20260118
  Serious: Yes (Other)
  Sender: Kenvue
  Company Number: KR-KENVUE-20251006511

PATIENT

DRUGS (2)
  1. TYLENOL 8HR [Suspect]
     Active Substance: ACETAMINOPHEN
     Indication: Goitre
     Dosage: 1 DOSAGE FORM, 0.33 TIME A DAY
     Route: 065
     Dates: start: 20190704, end: 20190704
  2. LOXOPROFEN SODIUM DIHYDRATE [Concomitant]
     Active Substance: LOXOPROFEN SODIUM DIHYDRATE
     Indication: Goitre
     Dosage: 1 DOSAGE FORM, 0.33 TIME A DAY
     Route: 065
     Dates: start: 20190704, end: 20190704

REACTIONS (2)
  - Ocular hyperaemia [Recovered/Resolved]
  - Angioedema [Recovered/Resolved]

NARRATIVE: CASE EVENT DATE: 20190704
